FAERS Safety Report 13588374 (Version 1)
Quarter: 2017Q2

REPORT INFORMATION
  Report Type: Spontaneous
  Country: US (occurrence: US)
  Receive Date: 20170528
  Receipt Date: 20170528
  Transmission Date: 20170830
  Serious: No
  Sender: FDA-Public Use
  Company Number: US-GLAXOSMITHKLINE-US2017077865

PATIENT
  Age: 57 Year
  Sex: Female

DRUGS (8)
  1. BENLYSTA [Suspect]
     Active Substance: BELIMUMAB
     Indication: SYSTEMIC LUPUS ERYTHEMATOSUS
     Dosage: UNK UNK, CYC
     Route: 042
     Dates: start: 20160930, end: 20170425
  2. FLAXSEED [Concomitant]
     Active Substance: FLAX SEED
  3. PREDNISONE. [Concomitant]
     Active Substance: PREDNISONE
  4. ATORVASTATINE [Concomitant]
     Active Substance: ATORVASTATIN
  5. PLAQUENIL [Concomitant]
     Active Substance: HYDROXYCHLOROQUINE SULFATE
  6. CALCIUM [Concomitant]
     Active Substance: CALCIUM
  7. CELLCEPT [Concomitant]
     Active Substance: MYCOPHENOLATE MOFETIL\MYCOPHENOLATE MOFETIL HYDROCHLORIDE
  8. CRANBERRY. [Concomitant]
     Active Substance: CRANBERRY

REACTIONS (2)
  - Muscle injury [Recovering/Resolving]
  - Surgery [Unknown]

NARRATIVE: CASE EVENT DATE: 20170425
